FAERS Safety Report 10357259 (Version 1)
Quarter: 2014Q3

REPORT INFORMATION
  Report Type: Spontaneous
  Country: GB (occurrence: GB)
  Receive Date: 20140801
  Receipt Date: 20140801
  Transmission Date: 20150326
  Serious: Yes (Hospitalization)
  Sender: FDA-Public Use
  Company Number: PHHY2014GB091385

PATIENT
  Age: 1 Hour
  Sex: Male
  Weight: 3.56 kg

DRUGS (3)
  1. CEFOTAXIME [Concomitant]
     Active Substance: CEFOTAXIME\CEFOTAXIME SODIUM
     Indication: PRODUCT USED FOR UNKNOWN INDICATION
     Dosage: 180 MG, BID (IV SLOW BOLUS OVER 3-4 MINUTES)
     Route: 040
     Dates: start: 20140615
  2. AMOXICILLIN. [Suspect]
     Active Substance: AMOXICILLIN
     Indication: AMNIOTIC CAVITY INFECTION
     Dosage: 180 MG, BID (IV SLOW BOLUS OVER 3-4 MINUTES)
     Route: 040
     Dates: start: 20140615, end: 20140615
  3. SODIUM CHLORIDE. [Concomitant]
     Active Substance: SODIUM CHLORIDE
     Indication: CATHETER MANAGEMENT
     Route: 042
     Dates: start: 20140615

REACTIONS (2)
  - Extravasation [Recovering/Resolving]
  - Off label use [Recovering/Resolving]

NARRATIVE: CASE EVENT DATE: 20140615
